APPROVED DRUG PRODUCT: MESNA
Active Ingredient: MESNA
Strength: 100MG/ML
Dosage Form/Route: INJECTABLE;INTRAVENOUS
Application: A075764 | Product #001
Applicant: TEVA PHARMACEUTICALS USA
Approved: Apr 27, 2001 | RLD: No | RS: No | Type: DISCN